FAERS Safety Report 18452775 (Version 2)
Quarter: 2021Q3

REPORT INFORMATION
  Report Type: Spontaneous
  Country: US (occurrence: US)
  Receive Date: 20201102
  Receipt Date: 20210917
  Transmission Date: 20211014
  Serious: No
  Sender: FDA-Public Use
  Company Number: US-PFIZER INC-2020418282

PATIENT
  Age: 68 Year
  Sex: Female

DRUGS (2)
  1. LYRICA [Suspect]
     Active Substance: PREGABALIN
     Dosage: 200 MG, 3X/DAY
  2. LYRICA [Suspect]
     Active Substance: PREGABALIN
     Indication: NEUROPATHY PERIPHERAL
     Dosage: 1 DF, 3X/DAY
     Route: 048

REACTIONS (10)
  - Decreased appetite [Unknown]
  - Headache [Unknown]
  - Feeling hot [Unknown]
  - Malaise [Unknown]
  - Anxiety [Unknown]
  - Reversed hot-cold sensation [Unknown]
  - Mean cell volume increased [Unknown]
  - Withdrawal syndrome [Unknown]
  - Chills [Unknown]
  - Intentional product misuse [Unknown]

NARRATIVE: CASE EVENT DATE: 20200115
